FAERS Safety Report 8900911 (Version 1)
Quarter: 2012Q4

REPORT INFORMATION
  Report Type: 
  Country: US (occurrence: US)
  Receive Date: 20121108
  Receipt Date: 20121108
  Transmission Date: 20130627
  Serious: No
  Sender: FDA-Public Use
  Company Number: US-AMGEN-USASP2012026082

PATIENT
  Age: 69 Year
  Sex: Female

DRUGS (5)
  1. ENBREL [Suspect]
     Indication: PRODUCT USED FOR UNKNOWN INDICATION
     Dosage: 50 mg, 2 times/wk
     Route: 058
  2. JANUVIA [Concomitant]
     Dosage: 25 mg, UNK
  3. LIPITOR [Concomitant]
     Dosage: 10 mg, UNK
  4. TARKA [Concomitant]
     Dosage: UNK
  5. METFORMIN [Concomitant]
     Dosage: 500 mg, UNK

REACTIONS (1)
  - Condition aggravated [Unknown]
